FAERS Safety Report 16731397 (Version 3)
Quarter: 2019Q3

REPORT INFORMATION
  Report Type: Spontaneous
  Country: US (occurrence: US)
  Receive Date: 20190822
  Receipt Date: 20190912
  Transmission Date: 20191005
  Serious: Yes (Hospitalization)
  Sender: FDA-Public Use
  Company Number: US-VERTEX PHARMACEUTICALS-2019-007703

PATIENT
  Age: 15 Year
  Sex: Female
  Weight: 44 kg

DRUGS (13)
  1. ORKAMBI [Suspect]
     Active Substance: IVACAFTOR\LUMACAFTOR
     Indication: CYSTIC FIBROSIS
     Dosage: 200/125 MG, BID
     Route: 048
     Dates: start: 201708
  2. HYPERSAL [Concomitant]
     Active Substance: SODIUM CHLORIDE
     Dosage: UNK
  3. URSODIOL. [Concomitant]
     Active Substance: URSODIOL
     Dosage: UNK
  4. PRILOSEC [Concomitant]
     Active Substance: OMEPRAZOLE MAGNESIUM
     Dosage: UNK
  5. TOBRAMYCIN. [Concomitant]
     Active Substance: TOBRAMYCIN
     Dosage: UNK
  6. AZITHROMYCIN ANHYDROUS. [Concomitant]
     Active Substance: AZITHROMYCIN ANHYDROUS
     Dosage: UNK
  7. VENTOLIN [Concomitant]
     Active Substance: ALBUTEROL SULFATE
     Dosage: UNK
  8. PULMOZYME [Concomitant]
     Active Substance: DORNASE ALFA
     Dosage: UNK
  9. SYMBICORT [Concomitant]
     Active Substance: BUDESONIDE\FORMOTEROL FUMARATE DIHYDRATE
     Dosage: UNK
  10. SINGULAIR [Concomitant]
     Active Substance: MONTELUKAST SODIUM
     Dosage: UNK
  11. CREON [Concomitant]
     Active Substance: PANCRELIPASE AMYLASE\PANCRELIPASE LIPASE\PANCRELIPASE PROTEASE
     Dosage: UNK
  12. VITAMAX [Concomitant]
     Dosage: UNK
  13. TERBINAFINE. [Concomitant]
     Active Substance: TERBINAFINE
     Dosage: UNK

REACTIONS (2)
  - Cough [Recovered/Resolved]
  - Pseudomonas test positive [Unknown]

NARRATIVE: CASE EVENT DATE: 201907
